FAERS Safety Report 23228342 (Version 2)
Quarter: 2024Q1

REPORT INFORMATION
  Report Type: Spontaneous
  Country: US (occurrence: US)
  Receive Date: 20231125
  Receipt Date: 20240115
  Transmission Date: 20240409
  Serious: No
  Sender: FDA-Public Use
  Company Number: US-ABBVIE-5507891

PATIENT
  Age: 22 Year
  Sex: Female

DRUGS (1)
  1. LILETTA [Suspect]
     Active Substance: LEVONORGESTREL
     Indication: Product used for unknown indication
     Dosage: TIME INTERVAL: AS NECESSARY: 52MG
     Route: 015

REACTIONS (2)
  - Postpartum uterine subinvolution [Unknown]
  - Muscle spasms [Unknown]

NARRATIVE: CASE EVENT DATE: 20231116
